FAERS Safety Report 17596513 (Version 1)
Quarter: 2020Q1

REPORT INFORMATION
  Report Type: Report from Study
  Country: GB (occurrence: GB)
  Receive Date: 20200330
  Receipt Date: 20200330
  Transmission Date: 20200409
  Serious: Yes (Hospitalization)
  Sender: FDA-Public Use
  Company Number: GB-ROCHE-2569127

PATIENT
  Age: 62 Year
  Sex: Female
  Weight: 79.3 kg

DRUGS (2)
  1. BEVACIZUMAB. [Suspect]
     Active Substance: BEVACIZUMAB
     Indication: MALIGNANT PERITONEAL NEOPLASM
     Dosage: ON 28/FEB/2020 SHE RECEIVED THE MOST RECENT DOSE OF THE INTRAVENOUS BEVACIZUMAB 1100 MG
     Route: 042
     Dates: start: 20200228
  2. ATEZOLIZUMAB. [Suspect]
     Active Substance: ATEZOLIZUMAB
     Indication: MALIGNANT PERITONEAL NEOPLASM
     Dosage: ON 28/FEB/2020 SHE RECEIVED THE MOST RECENT DOSE OF THE INTRAVENOUS ATEZOLIZUMAB 1200 MG
     Route: 042
     Dates: start: 20200228

REACTIONS (4)
  - Pyrexia [Unknown]
  - Abdominal pain [Unknown]
  - Nausea [Unknown]
  - Vomiting [Unknown]

NARRATIVE: CASE EVENT DATE: 20200312
